FAERS Safety Report 8573282-2 (Version None)
Quarter: 2012Q3

REPORT INFORMATION
  Report Type: 
  Country: None (occurrence: None)
  Receive Date: 20120806
  Receipt Date: 20120530
  Transmission Date: 20120928
  Serious: No
  Sender: FDA-Public Use
  Company Number: US-009507513-2012SP035880

PATIENT

DRUGS (2)
  1. MIRALAX [Suspect]
     Indication: MEDICAL OBSERVATION
  2. MIRALAX [Suspect]
     Indication: GASTROINTESTINAL DISORDER THERAPY
     Dosage: UNK UNK, QD
     Route: 048

REACTIONS (4)
  - CHEST PAIN [None]
  - INCORRECT DRUG ADMINISTRATION DURATION [None]
  - ERUCTATION [None]
  - NO THERAPEUTIC RESPONSE [None]
